FAERS Safety Report 5491043-8 (Version None)
Quarter: 2007Q4

REPORT INFORMATION
  Report Type: 
  Country: None (occurrence: None)
  Receive Date: 20071019
  Receipt Date: 20071010
  Transmission Date: 20080405
  Serious: Yes (Hospitalization)
  Sender: FDA-Public Use
  Company Number: US-PFIZER INC-2007037746

PATIENT
  Sex: Male
  Weight: 74.8 kg

DRUGS (2)
  1. BEXTRA [Suspect]
     Indication: ARTHRALGIA
     Route: 048
  2. CELEBREX [Suspect]
     Indication: ARTHRALGIA

REACTIONS (5)
  - ARTHRALGIA [None]
  - CHEST PAIN [None]
  - DIZZINESS [None]
  - DYSPNOEA [None]
  - MIGRAINE [None]
